FAERS Safety Report 9565146 (Version 1)
Quarter: 2013Q3

REPORT INFORMATION
  Report Type: Report from Study
  Country: CA (occurrence: CA)
  Receive Date: 20130930
  Receipt Date: 20130930
  Transmission Date: 20140515
  Serious: Yes (Other)
  Sender: FDA-Public Use
  Company Number: CA-JNJFOC-20130914041

PATIENT
  Age: 60 Year
  Sex: Female
  Weight: 82 kg

DRUGS (17)
  1. REMICADE [Suspect]
     Indication: PSORIASIS
     Route: 042
     Dates: start: 20130923
  2. REMICADE [Suspect]
     Indication: PSORIASIS
     Route: 042
     Dates: start: 20110106
  3. REMICADE [Suspect]
     Indication: PSORIASIS
     Route: 042
     Dates: start: 20130814
  4. REMICADE [Suspect]
     Indication: PSORIATIC ARTHROPATHY
     Route: 042
     Dates: start: 20130923
  5. REMICADE [Suspect]
     Indication: PSORIATIC ARTHROPATHY
     Route: 042
     Dates: start: 20110106
  6. REMICADE [Suspect]
     Indication: PSORIATIC ARTHROPATHY
     Route: 042
     Dates: start: 20130814
  7. NORVASC [Concomitant]
     Route: 065
  8. REACTINE [Concomitant]
     Route: 065
  9. SYNTHROID [Concomitant]
     Route: 065
  10. LOSEC [Concomitant]
     Route: 065
  11. PROZAC [Concomitant]
     Route: 065
  12. METHOTREXATE [Concomitant]
     Route: 065
  13. FOLIC ACID [Concomitant]
     Route: 065
  14. HYDROXYZINE [Concomitant]
     Route: 065
  15. TYLENOL [Concomitant]
     Indication: PREMEDICATION
     Route: 048
  16. SOLUCORTEF [Concomitant]
     Indication: PREMEDICATION
     Route: 042
  17. BENADRYL [Concomitant]
     Indication: PREMEDICATION
     Route: 048

REACTIONS (1)
  - Angioedema [Recovered/Resolved]
